FAERS Safety Report 5177068-0 (Version None)
Quarter: 2006Q4

REPORT INFORMATION
  Report Type: 
  Country: None (occurrence: None)
  Receive Date: 20061218
  Receipt Date: 20061213
  Transmission Date: 20070319
  Serious: Yes (Disabling)
  Sender: FDA-Public Use
  Company Number: PT-GLAXOSMITHKLINE-B0450797A

PATIENT
  Age: 52 Year
  Sex: Female

DRUGS (3)
  1. ZOREF [Suspect]
     Indication: INFECTION PROPHYLAXIS
     Dosage: 500MG TWICE PER DAY
     Route: 048
     Dates: start: 20061117, end: 20061118
  2. FLAVONOIDS [Concomitant]
     Route: 048
     Dates: start: 20061117, end: 20061118
  3. BROMELAIN [Concomitant]
     Route: 048
     Dates: start: 20061117, end: 20061118

REACTIONS (7)
  - FACE OEDEMA [None]
  - HYPERSENSITIVITY [None]
  - LOCALISED OEDEMA [None]
  - OEDEMA PERIPHERAL [None]
  - PERIORBITAL OEDEMA [None]
  - RASH MACULO-PAPULAR [None]
  - URTICARIA [None]
